FAERS Safety Report 25176131 (Version 6)
Quarter: 2025Q2

REPORT INFORMATION
  Report Type: Report from Study
  Country: GB (occurrence: GB)
  Receive Date: 20250409
  Receipt Date: 20250625
  Transmission Date: 20250716
  Serious: Yes (Hospitalization)
  Sender: ABBVIE
  Company Number: GB-ABBVIE-6213545

PATIENT
  Age: 54 Year
  Sex: Male

DRUGS (2)
  1. SKYRIZI [Suspect]
     Active Substance: RISANKIZUMAB-RZAA
     Indication: Crohn^s disease
     Dosage: STRENGTH:  360MG/2.4ML?DOSE- 1.00 EA?DOSE FROM - SOLUTION FOR INJECTION IN CARTRIDGE
     Route: 058
     Dates: start: 20241107
  2. SKYRIZI [Suspect]
     Active Substance: RISANKIZUMAB-RZAA
     Dosage: STRENGTH:  360MG/2.4ML?DOSE- 1.00 EA?DOSE FROM - SOLUTION FOR INJECTION IN CARTRIDGE
     Route: 058
     Dates: start: 202504

REACTIONS (2)
  - Surgery [Recovering/Resolving]
  - Infection [Unknown]

NARRATIVE: CASE EVENT DATE: 20250401
